FAERS Safety Report 10547306 (Version 6)
Quarter: 2015Q2

REPORT INFORMATION
  Report Type: Spontaneous
  Country: CA (occurrence: CA)
  Receive Date: 20141028
  Receipt Date: 20150525
  Transmission Date: 20150821
  Serious: Yes (Hospitalization, Other)
  Sender: FDA-Public Use
  Company Number: CA-ROCHE-1479164

PATIENT
  Age: 66 Year
  Sex: Female
  Weight: 84 kg

DRUGS (3)
  1. XOLAIR [Suspect]
     Active Substance: OMALIZUMAB
     Indication: ASTHMA
     Route: 058
     Dates: start: 20140205
  2. XOLAIR [Suspect]
     Active Substance: OMALIZUMAB
     Route: 058
     Dates: start: 20140305
  3. VENTOLIN [Concomitant]
     Active Substance: ALBUTEROL SULFATE
     Dosage: 2 PUFFS
     Route: 065

REACTIONS (19)
  - Fall [Unknown]
  - Sleep apnoea syndrome [Unknown]
  - Upper limb fracture [Unknown]
  - Weight decreased [Unknown]
  - Fear [Unknown]
  - Fatigue [Unknown]
  - Vascular occlusion [Unknown]
  - Fluid retention [Unknown]
  - Nasal dryness [Unknown]
  - Cough [Recovered/Resolved]
  - Joint dislocation [Unknown]
  - Epistaxis [Unknown]
  - Panic attack [Unknown]
  - Pneumonia [Recovered/Resolved]
  - Cardiac disorder [Unknown]
  - Increased bronchial secretion [Unknown]
  - Dyspnoea [Unknown]
  - Hypersensitivity [Unknown]
  - Bronchitis [Unknown]

NARRATIVE: CASE EVENT DATE: 20140205
